FAERS Safety Report 7053516-6 (Version None)
Quarter: 2010Q4

REPORT INFORMATION
  Report Type: 
  Country: None (occurrence: None)
  Receive Date: 20101020
  Receipt Date: 20101012
  Transmission Date: 20110411
  Serious: No
  Sender: FDA-Public Use
  Company Number: US-PFIZER INC-2010129748

PATIENT
  Sex: Female
  Weight: 50.794 kg

DRUGS (1)
  1. DOXYCYCLINE HYCLATE [Suspect]
     Indication: LYME DISEASE
     Dosage: 100 MG, 2X/DAY
     Route: 048
     Dates: start: 20100101, end: 20100101

REACTIONS (3)
  - ABDOMINAL DISCOMFORT [None]
  - NAUSEA [None]
  - VOMITING [None]
